FAERS Safety Report 5413228-9 (Version None)
Quarter: 2007Q3

REPORT INFORMATION
  Report Type: 
  Country: None (occurrence: None)
  Receive Date: 20070814
  Receipt Date: 20070808
  Transmission Date: 20080115
  Serious: Yes (Other)
  Sender: FDA-Public Use
  Company Number: PHNU2004DE04047

PATIENT
  Age: 59 Year
  Sex: Female
  Weight: 50 kg

DRUGS (6)
  1. FEMARA [Concomitant]
     Indication: BREAST CANCER FEMALE
     Dosage: 2.5 MG, QD
     Route: 048
     Dates: start: 20031127
  2. VALORON N [Concomitant]
     Indication: PAIN
     Dosage: 50 MG, BID
     Route: 048
     Dates: start: 20031009
  3. VIOXX [Concomitant]
     Indication: PAIN
     Dosage: 25 MG, QD
     Route: 048
     Dates: start: 20031229, end: 20040101
  4. BERLOSIN [Concomitant]
     Indication: PAIN
     Dosage: 1 DF, QD
     Route: 048
     Dates: start: 20031009
  5. ZOMETA [Suspect]
     Indication: METASTASES TO BONE
     Dosage: 4 MG, QMO
     Route: 042
     Dates: start: 20031009, end: 20061109
  6. TAXOTERE [Concomitant]
     Route: 065
     Dates: start: 20060901, end: 20061214

REACTIONS (13)
  - ACTINOMYCOSIS [None]
  - BIOPSY BONE ABNORMAL [None]
  - BONE DISORDER [None]
  - CHRONIC SINUSITIS [None]
  - FISTULA [None]
  - IMPAIRED HEALING [None]
  - INFLAMMATION [None]
  - ORAL SURGERY [None]
  - OSTEONECROSIS [None]
  - OSTEOTOMY [None]
  - PRIMARY SEQUESTRUM [None]
  - SCINTIGRAPHY [None]
  - TOOTH EXTRACTION [None]
